FAERS Safety Report 20885360 (Version 1)
Quarter: 2022Q2

REPORT INFORMATION
  Report Type: Report from Study
  Country: US (occurrence: US)
  Receive Date: 20220527
  Receipt Date: 20220527
  Transmission Date: 20220721
  Serious: Yes (Hospitalization)
  Sender: FDA-Public Use
  Company Number: US-KYOWAKIRIN-2022BKK007487

PATIENT

DRUGS (4)
  1. CRYSVITA [Suspect]
     Active Substance: BUROSUMAB-TWZA
     Indication: Osteomalacia
     Dosage: 50 MG, EVERY 28 DAYS
     Route: 058
     Dates: start: 20210209
  2. CRYSVITA [Suspect]
     Active Substance: BUROSUMAB-TWZA
     Dosage: UNK, DOSE WAS INCREASED IN SEPTEMBER/OCTOBER 2021
     Route: 065
     Dates: start: 2021
  3. CRYSVITA [Suspect]
     Active Substance: BUROSUMAB-TWZA
     Indication: Osteomalacia
     Dosage: 50 MG,EVERY 28 DAYS
     Route: 058
     Dates: start: 20210209
  4. CRYSVITA [Suspect]
     Active Substance: BUROSUMAB-TWZA
     Dosage: UNK,DOSE WAS INCREASED IN SEPTEMBER/OCTOBER 2021
     Route: 065
     Dates: start: 2021

REACTIONS (4)
  - Pleural effusion [Unknown]
  - Hyperthermia [Unknown]
  - Fatigue [Recovering/Resolving]
  - Musculoskeletal discomfort [Recovering/Resolving]

NARRATIVE: CASE EVENT DATE: 20220325
